FAERS Safety Report 9046242 (Version 1)
Quarter: 2013Q1

REPORT INFORMATION
  Report Type: Spontaneous
  Country: US (occurrence: None)
  Receive Date: 20130128
  Receipt Date: 20130128
  Transmission Date: 20140127
  Serious: Yes (Death)
  Sender: FDA-Public Use
  Company Number: None

PATIENT
  Age: 63 Year
  Sex: Female
  Weight: 78 kg

DRUGS (6)
  1. DOCETAXEL [Suspect]
     Indication: NON-SMALL CELL LUNG CANCER
     Route: 042
     Dates: start: 20121205, end: 20121226
  2. SURAMIN [Suspect]
     Route: 042
     Dates: start: 20121205, end: 20121226
  3. VERAPAMIL [Concomitant]
  4. LASIX [Concomitant]
  5. POTASSIUM [Concomitant]
  6. SONATA [Concomitant]

REACTIONS (7)
  - Chest pain [None]
  - Abdominal discomfort [None]
  - Performance status decreased [None]
  - Atrial fibrillation [None]
  - Heart rate increased [None]
  - Neoplasm progression [None]
  - Non-small cell lung cancer [None]
